FAERS Safety Report 9359325 (Version 2)
Quarter: 2013Q2

REPORT INFORMATION
  Report Type: Spontaneous
  Country: DE (occurrence: DE)
  Receive Date: 20130620
  Receipt Date: 20130628
  Transmission Date: 20140414
  Serious: Yes (Other)
  Sender: FDA-Public Use
  Company Number: CHPA2013DE010059

PATIENT
  Sex: Male
  Weight: 98 kg

DRUGS (9)
  1. IBUPROFEN [Suspect]
     Indication: RHEUMATOID ARTHRITIS
     Dosage: UNK, UNK
     Route: 048
     Dates: start: 2011, end: 2011
  2. IBUPROFEN [Suspect]
     Indication: TOOTHACHE
  3. LOSAR//LOSARTAN POTASSIUM [Concomitant]
     Indication: NEPHROTIC SYNDROME
     Dosage: 2 DF, QD
  4. ATENOLOL [Concomitant]
     Dosage: 2 DF, QD
     Route: 048
  5. TORASEMID [Concomitant]
     Dosage: 1 DF, QD
  6. OMEPRAZOL//OMEPRAZOLE [Concomitant]
     Dosage: 1 DF, QD
  7. ADENURIC [Concomitant]
     Dosage: 1 DF, QD
  8. ALFACALCIDOL TEVA [Concomitant]
     Dosage: UNK UNK, Q48H
  9. PREDNISOLON [Concomitant]
     Indication: RHEUMATOID ARTHRITIS
     Dosage: 25 MG, QD

REACTIONS (1)
  - Anuria [Recovered/Resolved]
